FAERS Safety Report 7311931-7 (Version None)
Quarter: 2011Q1

REPORT INFORMATION
  Report Type: 
  Country: None (occurrence: None)
  Receive Date: 20110224
  Receipt Date: 20110222
  Transmission Date: 20110831
  Serious: Yes (Death, Hospitalization)
  Sender: FDA-Public Use
  Company Number: PHHO2010GB16449

PATIENT
  Sex: Male

DRUGS (4)
  1. MYLOTARG [Concomitant]
  2. ARA-C [Suspect]
     Dosage: UNK
     Dates: start: 20100920
  3. MITOXANTRONE [Suspect]
     Dosage: UNK
     Dates: start: 20100920
  4. EVEROLIMUS [Suspect]
     Indication: ACUTE MYELOID LEUKAEMIA
     Dosage: UNKNOWN
     Route: 048
     Dates: start: 20100926, end: 20101023

REACTIONS (9)
  - CEREBRAL HAEMORRHAGE [None]
  - ASPERGILLOMA [None]
  - CEREBRAL DISORDER [None]
  - URINARY INCONTINENCE [None]
  - C-REACTIVE PROTEIN INCREASED [None]
  - FEBRILE NEUTROPENIA [None]
  - ASPERGILLOSIS [None]
  - HEMIPARESIS [None]
  - LUNG INFILTRATION [None]
